FAERS Safety Report 7866586-X (Version None)
Quarter: 2011Q4

REPORT INFORMATION
  Report Type: 
  Country: None (occurrence: None)
  Receive Date: 20111028
  Receipt Date: 20110711
  Transmission Date: 20120403
  Serious: No
  Sender: FDA-Public Use
  Company Number: US-GLAXOSMITHKLINE-A0936306A

PATIENT
  Age: 68 Year
  Sex: Female

DRUGS (7)
  1. PRILOSEC [Concomitant]
  2. OXYCONTIN [Concomitant]
  3. PREDNISONE [Concomitant]
  4. ADVAIR DISKUS 100/50 [Suspect]
     Indication: PRODUCT USED FOR UNKNOWN INDICATION
     Dosage: 1PUFF TWICE PER DAY
     Route: 055
     Dates: start: 20030515
  5. NASONEX [Concomitant]
  6. ROPINIROLE [Concomitant]
  7. PROAIR HFA [Concomitant]

REACTIONS (2)
  - THERAPEUTIC RESPONSE DECREASED [None]
  - PRODUCT QUALITY ISSUE [None]
